FAERS Safety Report 9306417 (Version 2)
Quarter: 2013Q2

REPORT INFORMATION
  Report Type: Spontaneous
  Country: US (occurrence: None)
  Receive Date: 20130501
  Receipt Date: 20130514
  Transmission Date: 20140414
  Serious: Yes (Death, Hospitalization)
  Sender: FDA-Public Use
  Company Number: 2013035674

PATIENT
  Age: 56 Year
  Sex: Male
  Weight: 46.27 kg

DRUGS (1)
  1. HIZENTRA [Suspect]
     Indication: IMMUNODEFICIENCY COMMON VARIABLE
     Dosage: 1X/ WEEK
     Route: 058
     Dates: start: 201204

REACTIONS (6)
  - Malaise [None]
  - Gastric neoplasm [None]
  - Pneumonia [None]
  - Treatment failure [None]
  - Liver injury [None]
  - Nutritional condition abnormal [None]
